FAERS Safety Report 8420531 (Version 2)
Quarter: 2013Q2

REPORT INFORMATION
  Report Type: Spontaneous
  Country: US (occurrence: None)
  Receive Date: 20111227
  Receipt Date: 20120426
  Transmission Date: 20140414
  Serious: No
  Sender: FDA-Public Use
  Company Number: PHEH2011US009180

PATIENT
  Age: 58 Year
  Sex: Female

DRUGS (8)
  1. GILENYA [Suspect]
     Route: 048
     Dates: start: 20110930
  2. UNSPECIFIED INGREDIENT [Suspect]
     Dosage: ORAL
     Route: 048
     Dates: end: 20110111
  3. CALCIUM (CALCIUM, COLECALCIFEROL) [Concomitant]
  4. MULTIVITAMINS (ASCORBIC ACID, ERGOCALCIFEROL, FOLIC ACID, NICOTINAMIDE, PANTHENOL, RETINOL, RIBOFLAVIN, THIAMINE HYDROCHLORIDE) [Concomitant]
  5. BACLOFEN [Concomitant]
  6. NEURONTIN [Concomitant]
  7. ZANAFLEX [Concomitant]
  8. HERBAL ESTROGEN REPLACEMENT (NO INGREDIENTS/SUBSTANCES) [Concomitant]

REACTIONS (2)
  - JOINT SWELLING [None]
  - OEDEMA PERIPHERAL [None]
